FAERS Safety Report 4732094-8 (Version None)
Quarter: 2005Q3

REPORT INFORMATION
  Report Type: 
  Country: None (occurrence: None)
  Receive Date: 20050725
  Receipt Date: 20040805
  Transmission Date: 20060218
  Serious: Yes (Hospitalization)
  Sender: FDA-Public Use
  Company Number: PHEH2004US08489

PATIENT
  Age: 9 Year
  Sex: Female

DRUGS (1)
  1. TRILEPTAL [Suspect]
     Indication: AFFECTIVE DISORDER
     Dosage: UNK, BID, ORAL
     Route: 048
     Dates: start: 20031101

REACTIONS (3)
  - NAUSEA [None]
  - VOMITING [None]
  - VOMITING PSYCHOGENIC [None]
